FAERS Safety Report 23524477 (Version 1)
Quarter: 2024Q1

REPORT INFORMATION
  Report Type: 
  Country: None (occurrence: None)
  Receive Date: 20240214
  Receipt Date: 20240214
  Transmission Date: 20240410
  Serious: No
  Sender: FDA-Public Use
  Company Number: US-ROCHE-3506391

PATIENT

DRUGS (1)
  1. ERIVEDGE [Suspect]
     Active Substance: VISMODEGIB
     Dosage: TAKE 1 CAPSULE BY MOUTH EVERY DAY SWALLOWING WHOLE. DO NOT CRUSH OR OPEN.

REACTIONS (3)
  - Dehydration [None]
  - Thrombosis [None]
  - Mobility decreased [None]
